APPROVED DRUG PRODUCT: ACYCLOVIR SODIUM
Active Ingredient: ACYCLOVIR SODIUM
Strength: EQ 50MG BASE/ML
Dosage Form/Route: INJECTABLE;INJECTION
Application: A207919 | Product #001
Applicant: DR REDDYS LABORATORIES INC
Approved: Jun 17, 2020 | RLD: No | RS: No | Type: DISCN